FAERS Safety Report 8113300-9 (Version None)
Quarter: 2012Q1

REPORT INFORMATION
  Report Type: 
  Country: None (occurrence: None)
  Receive Date: 20120203
  Receipt Date: 20120127
  Transmission Date: 20120608
  Serious: Yes (Other)
  Sender: FDA-Public Use
  Company Number: PHHY2012JP008053

PATIENT
  Sex: Male

DRUGS (1)
  1. ZADITEN [Suspect]
     Indication: ECZEMA
     Route: 048

REACTIONS (3)
  - PYREXIA [None]
  - FEBRILE CONVULSION [None]
  - NASOPHARYNGITIS [None]
